FAERS Safety Report 10347444 (Version 1)
Quarter: 2014Q3

REPORT INFORMATION
  Report Type: Spontaneous
  Country: US (occurrence: US)
  Receive Date: 20140729
  Receipt Date: 20140729
  Transmission Date: 20150326
  Serious: Yes (Hospitalization, Other)
  Sender: FDA-Public Use
  Company Number: US-PFIZER INC-2014209022

PATIENT
  Age: 48 Year
  Sex: Female
  Weight: 119.73 kg

DRUGS (1)
  1. LYRICA [Suspect]
     Active Substance: PREGABALIN
     Indication: DIABETIC NEUROPATHY
     Dosage: 150 MG, 4X/DAY
     Route: 048

REACTIONS (15)
  - Tongue disorder [Unknown]
  - Hypovitaminosis [Unknown]
  - Localised infection [Unknown]
  - Musculoskeletal disorder [Unknown]
  - Glossodynia [Unknown]
  - Oral pain [Unknown]
  - Neoplasm malignant [Unknown]
  - Fatigue [Unknown]
  - Liver function test abnormal [Unknown]
  - Therapeutic response changed [Unknown]
  - Anaemia [Unknown]
  - Dry mouth [Unknown]
  - Diabetic foot [Unknown]
  - Investigation abnormal [Unknown]
  - Malaise [Unknown]

NARRATIVE: CASE EVENT DATE: 200712
